FAERS Safety Report 7926197-4 (Version None)
Quarter: 2011Q4

REPORT INFORMATION
  Report Type: 
  Country: None (occurrence: None)
  Receive Date: 20111118
  Receipt Date: 20111102
  Transmission Date: 20120403
  Serious: No
  Sender: FDA-Public Use
  Company Number: US-AMGEN-USASP2011012235

PATIENT
  Age: 38 Year
  Sex: Female

DRUGS (6)
  1. SALSALATE [Concomitant]
     Dosage: 500 MG, BID
     Dates: start: 20080101, end: 20110225
  2. VISTARIL                           /00058402/ [Concomitant]
     Dosage: 25 MG, TID
     Dates: start: 20090601, end: 20110225
  3. MULTIVITAMIN                       /00097801/ [Concomitant]
     Dosage: UNK
     Dates: start: 20050101, end: 20110225
  4. ENBREL [Suspect]
     Indication: ANKYLOSING SPONDYLITIS
     Dosage: 25 MG, 2 TIMES/WK
     Route: 058
     Dates: start: 20051101, end: 20110222
  5. CALCIUM [Concomitant]
     Dosage: 1200 MG, QD
  6. CARBATROL [Concomitant]
     Dosage: 400 MG, BID
     Dates: start: 20090601, end: 20110225

REACTIONS (2)
  - BLOOD GLUCOSE INCREASED [None]
  - PREGNANCY [None]
